FAERS Safety Report 4690228-8 (Version None)
Quarter: 2005Q2

REPORT INFORMATION
  Report Type: 
  Country: None (occurrence: None)
  Receive Date: 20050615
  Receipt Date: 20050609
  Transmission Date: 20051028
  Serious: Yes (Death, Other)
  Sender: FDA-Public Use
  Company Number: 200514878US

PATIENT
  Sex: 0

DRUGS (1)
  1. LOVENOX [Suspect]
     Dosage: DOSE: NOT PROVIDED

REACTIONS (3)
  - DEATH [None]
  - ORGAN FAILURE [None]
  - THROMBOCYTOPENIA [None]
